FAERS Safety Report 7542646-8 (Version None)
Quarter: 2011Q2

REPORT INFORMATION
  Report Type: 
  Country: None (occurrence: None)
  Receive Date: 20110613
  Receipt Date: 20110602
  Transmission Date: 20111010
  Serious: Yes (Other)
  Sender: FDA-Public Use
  Company Number: US-ASTRAZENECA-2011SE00167

PATIENT
  Age: 44 Year
  Sex: Female

DRUGS (9)
  1. SEROQUEL XR [Suspect]
     Dosage: SOMETIMES TAKES TWICE A DAY
     Route: 048
  2. SEROQUEL XR [Suspect]
     Route: 048
  3. SEROQUEL XR [Suspect]
     Dosage: SOMETIMES TAKES TWICE A DAY
     Route: 048
  4. SEROQUEL XR [Suspect]
     Indication: MAJOR DEPRESSION
     Route: 048
  5. SEROQUEL XR [Suspect]
     Dosage: SOMETIMES TAKES TWICE A DAY
     Route: 048
  6. SEROQUEL XR [Suspect]
     Route: 048
  7. SEROQUEL XR [Suspect]
     Indication: BIPOLAR DISORDER
     Route: 048
  8. SEROQUEL XR [Suspect]
     Indication: SCHIZOPHRENIA
     Route: 048
  9. SEROQUEL XR [Suspect]
     Route: 048

REACTIONS (9)
  - SUBMANDIBULAR MASS [None]
  - HOMICIDAL IDEATION [None]
  - DIARRHOEA [None]
  - FEELING OF BODY TEMPERATURE CHANGE [None]
  - VOMITING [None]
  - MALAISE [None]
  - DRUG DOSE OMISSION [None]
  - SUICIDAL IDEATION [None]
  - HEADACHE [None]
